FAERS Safety Report 9329915 (Version 1)
Quarter: 2013Q2

REPORT INFORMATION
  Report Type: Spontaneous
  Country: US (occurrence: US)
  Receive Date: 20130604
  Receipt Date: 20130604
  Transmission Date: 20140414
  Serious: Yes (Hospitalization)
  Sender: FDA-Public Use
  Company Number: US-SANOFI-AVENTIS-2012SA052454

PATIENT
  Age: 59 Year
  Sex: Male
  Weight: 96.62 kg

DRUGS (8)
  1. SOLOSTAR [Suspect]
     Indication: TYPE 2 DIABETES MELLITUS
  2. LANTUS SOLOSTAR [Suspect]
     Indication: TYPE 2 DIABETES MELLITUS
     Dosage: DOSE:80 UNIT(S)
     Route: 058
  3. LANTUS SOLOSTAR [Suspect]
     Indication: TYPE 2 DIABETES MELLITUS
     Dosage: DOSE:240 UNIT(S)
     Route: 058
  4. NOVOLOG [Suspect]
     Indication: TYPE 2 DIABETES MELLITUS
     Dosage: DOSE:46 UNIT(S)
     Route: 065
  5. HYDROMORPHONE HYDROCHLORIDE [Concomitant]
  6. PRINZIDE [Concomitant]
     Indication: HYPERTENSION
  7. FENOFIBRATE [Concomitant]
     Indication: HYPERLIPIDAEMIA
  8. OXYCODONE [Concomitant]
     Indication: PAIN

REACTIONS (2)
  - Hypoglycaemia [Recovered/Resolved]
  - Accidental overdose [Recovered/Resolved]
